FAERS Safety Report 6490553-4 (Version None)
Quarter: 2009Q4

REPORT INFORMATION
  Report Type: 
  Country: None (occurrence: None)
  Receive Date: 20091211
  Receipt Date: 20091201
  Transmission Date: 20100525
  Serious: Yes (Hospitalization)
  Sender: FDA-Public Use
  Company Number: CN-PFIZER INC-2009301666

PATIENT
  Age: 48 Year
  Sex: Male
  Weight: 62 kg

DRUGS (8)
  1. SUNITINIB MALATE [Suspect]
     Indication: HEPATIC NEOPLASM MALIGNANT
     Dosage: 37.5 MG, 1X/DAY
     Route: 048
     Dates: start: 20090314, end: 20091117
  2. ZINC OXIDE OINTMENT [Concomitant]
     Indication: ANAL ULCER
     Dosage: UNK
     Dates: start: 20090611
  3. ZINC OXIDE OINTMENT [Concomitant]
     Indication: SKIN ULCER
  4. ESOMEPRAZOLE MAGNESIUM [Concomitant]
     Indication: GASTRITIS
     Dosage: 40 MG, 1X/DAY
     Dates: start: 20090314
  5. NIFEDIPINE [Concomitant]
     Indication: HYPERTENSION
     Dosage: 30 MG, 1X/DAY
     Dates: start: 20091117
  6. FELODIPINE [Concomitant]
     Indication: HYPERTENSION
     Dosage: 5 MG, 1X/DAY
     Dates: start: 20091120
  7. ADEMETIONINE [Concomitant]
     Indication: BLOOD BILIRUBIN INCREASED
     Dosage: 500 MG, 2X/DAY
     Dates: start: 20090328, end: 20091117
  8. HYALURONATE SODIUM [Concomitant]
     Indication: CONJUNCTIVAL HYPERAEMIA
     Dosage: UNK
     Dates: start: 20091117

REACTIONS (1)
  - GENERALISED OEDEMA [None]
